FAERS Safety Report 23248447 (Version 1)
Quarter: 2023Q4

REPORT INFORMATION
  Report Type: Spontaneous
  Country: CN (occurrence: CN)
  Receive Date: 20231201
  Receipt Date: 20231201
  Transmission Date: 20240109
  Serious: Yes (Hospitalization)
  Sender: FDA-Public Use
  Company Number: CN-SHANGHAI JUNSHI BIOSCIENCES CO., LTD.-CN2023008714

PATIENT

DRUGS (5)
  1. TORIPALIMAB [Suspect]
     Active Substance: TORIPALIMAB
     Indication: Malignant melanoma
     Dosage: 160 MG
     Route: 041
     Dates: start: 20231017, end: 20231017
  2. CISPLATIN [Suspect]
     Active Substance: CISPLATIN
     Indication: Malignant melanoma
     Dosage: 30 MG, D1-D2, QD
     Route: 041
     Dates: start: 20231017, end: 20231018
  3. CISPLATIN [Suspect]
     Active Substance: CISPLATIN
     Dosage: 20 MG, D3, QD
     Route: 041
     Dates: start: 20231019, end: 20231019
  4. TEMOZOLOMIDE [Suspect]
     Active Substance: TEMOZOLOMIDE
     Indication: Malignant melanoma
     Dosage: 0.2 G, D1-D5, QD
     Route: 048
     Dates: start: 20231017, end: 20231021
  5. BEVACIZUMAB [Concomitant]
     Active Substance: BEVACIZUMAB
     Indication: Malignant melanoma
     Dosage: 0.2 G
     Route: 041
     Dates: start: 20231017, end: 20231017

REACTIONS (2)
  - Myelosuppression [Recovering/Resolving]
  - Off label use [Unknown]

NARRATIVE: CASE EVENT DATE: 20231110
